FAERS Safety Report 9228736 (Version 2)
Quarter: 2013Q2

REPORT INFORMATION
  Report Type: Spontaneous
  Country: TR (occurrence: TR)
  Receive Date: 20130412
  Receipt Date: 20130417
  Transmission Date: 20140414
  Serious: Yes (Hospitalization, Other)
  Sender: FDA-Public Use
  Company Number: TR-PFIZER INC-2013111570

PATIENT
  Sex: Female

DRUGS (6)
  1. VENLAFAXINE HCL [Suspect]
     Indication: HEADACHE
     Dosage: 75 MG/DAY
  2. VENLAFAXINE HCL [Suspect]
     Dosage: 225 MG/DAY
  3. VENLAFAXINE HCL [Suspect]
     Dosage: 900 MG/DAY
  4. VENLAFAXINE HCL [Suspect]
     Dosage: 825 MG/DAY
  5. VENLAFAXINE HCL [Suspect]
     Dosage: 2100 MG, UNK
  6. VENLAFAXINE HCL [Suspect]
     Dosage: 1050 MG/DAY

REACTIONS (11)
  - Drug dependence [Recovering/Resolving]
  - Headache [Recovering/Resolving]
  - Nightmare [Unknown]
  - Fatigue [Unknown]
  - Insomnia [Unknown]
  - Myalgia [Unknown]
  - Muscle strain [Unknown]
  - Withdrawal syndrome [Unknown]
  - Nausea [Unknown]
  - Dizziness [Unknown]
  - Off label use [Unknown]
